FAERS Safety Report 10100616 (Version 1)
Quarter: 2014Q2

REPORT INFORMATION
  Report Type: Spontaneous
  Country: IT (occurrence: IT)
  Receive Date: 20140423
  Receipt Date: 20140423
  Transmission Date: 20141212
  Serious: Yes (Disabling)
  Sender: FDA-Public Use
  Company Number: PHHY2014IT048172

PATIENT
  Age: 80 Year
  Sex: Male

DRUGS (1)
  1. BICALUTAMIDE SANDOZ [Suspect]
     Indication: PROSTATE CANCER
     Dosage: 50 MG, QD
     Route: 048
     Dates: start: 20091001, end: 20140409

REACTIONS (6)
  - Vomiting [Recovering/Resolving]
  - Agitation [Recovering/Resolving]
  - Insomnia [Recovering/Resolving]
  - Pain [Recovering/Resolving]
  - Prostatic specific antigen increased [Recovering/Resolving]
  - Nausea [Recovering/Resolving]
